FAERS Safety Report 4984404-4 (Version None)
Quarter: 2006Q2

REPORT INFORMATION
  Report Type: 
  Country: None (occurrence: None)
  Receive Date: 20060421
  Receipt Date: 20060413
  Transmission Date: 20061013
  Serious: Yes (Other)
  Sender: FDA-Public Use
  Company Number: 2006010764

PATIENT
  Sex: Female

DRUGS (3)
  1. ZYRTEC [Suspect]
     Indication: SKIN DISORDER
  2. CLONIDINE [Suspect]
     Indication: HYPERTENSION
  3. ANTIHYPERTENSIVES (ANTIHYPERTENSIVES) [Suspect]
     Indication: HYPERTENSION

REACTIONS (6)
  - COUGH [None]
  - DRUG INTOLERANCE [None]
  - DRY MOUTH [None]
  - FATIGUE [None]
  - HYPERTENSION [None]
  - ILL-DEFINED DISORDER [None]
